FAERS Safety Report 13016435 (Version 2)
Quarter: 2017Q1

REPORT INFORMATION
  Report Type: Spontaneous
  Country: US (occurrence: US)
  Receive Date: 20161212
  Receipt Date: 20170112
  Transmission Date: 20170428
  Serious: Yes (Death, Hospitalization)
  Sender: FDA-Public Use
  Company Number: US-JNJFOC-20161106779

PATIENT
  Age: 69 Year
  Sex: Male

DRUGS (2)
  1. XARELTO [Suspect]
     Active Substance: RIVAROXABAN
     Indication: SUPERIOR VENA CAVA SYNDROME
     Route: 048
     Dates: end: 201411
  2. XARELTO [Suspect]
     Active Substance: RIVAROXABAN
     Indication: SUPERIOR VENA CAVA SYNDROME
     Route: 048
     Dates: start: 20140823, end: 20141020

REACTIONS (6)
  - Respiratory tract haemorrhage [Fatal]
  - Off label use [Unknown]
  - Shock haemorrhagic [Fatal]
  - Product use issue [Unknown]
  - Oesophageal haemorrhage [Fatal]
  - Lung carcinoma cell type unspecified stage IV [Fatal]

NARRATIVE: CASE EVENT DATE: 20140823
